FAERS Safety Report 7352323-4 (Version None)
Quarter: 2011Q1

REPORT INFORMATION
  Report Type: 
  Country: None (occurrence: None)
  Receive Date: 20110309
  Receipt Date: 20110309
  Transmission Date: 20110831
  Serious: Yes (Other)
  Sender: FDA-Public Use
  Company Number: None

PATIENT
  Age: 42 Year
  Sex: Female
  Weight: 62.1428 kg

DRUGS (1)
  1. SCOPOLAMINE [Suspect]
     Indication: NAUSEA
     Dates: start: 20110304, end: 20110305

REACTIONS (5)
  - MYDRIASIS [None]
  - BALANCE DISORDER [None]
  - SPEECH DISORDER [None]
  - DIZZINESS [None]
  - VISION BLURRED [None]
